FAERS Safety Report 14319615 (Version 1)
Quarter: 2017Q4

REPORT INFORMATION
  Report Type: Spontaneous
  Country: GB (occurrence: GB)
  Receive Date: 20171222
  Receipt Date: 20171222
  Transmission Date: 20180321
  Serious: Yes (Death, Other)
  Sender: FDA-Public Use
  Company Number: GB-TEVA-821129ACC

PATIENT
  Age: 81 Year
  Sex: Male

DRUGS (11)
  1. CODEINE [Concomitant]
     Active Substance: CODEINE
  2. CYCLIZINE [Concomitant]
     Active Substance: CYCLIZINE
  3. OMEPRAZOLE. [Concomitant]
     Active Substance: OMEPRAZOLE
  4. FLUCLOXACILLIN [Concomitant]
     Active Substance: FLUCLOXACILLIN
     Indication: DIABETIC FOOT
     Dosage: 4 MILLIGRAM DAILY;
     Dates: start: 20170908
  5. GLICLAZIDE [Concomitant]
     Active Substance: GLICLAZIDE
     Dosage: 40 MILLIGRAM DAILY;
  6. SODIUM FUSIDATE [Interacting]
     Active Substance: FUSIDATE SODIUM
     Indication: OSTEOMYELITIS ACUTE
     Dosage: 1500 MILLIGRAM DAILY;
     Route: 048
     Dates: start: 20170908, end: 20171004
  7. ATORVASTATIN [Suspect]
     Active Substance: ATORVASTATIN
  8. FRUSEMIDE [Concomitant]
     Active Substance: FUROSEMIDE
     Dosage: 20 MILLIGRAM DAILY;
  9. SODIUM FUSIDATE [Concomitant]
     Active Substance: FUSIDATE SODIUM
     Indication: DIABETIC FOOT
     Dosage: 1500 MILLIGRAM DAILY;
     Dates: start: 20170908
  10. FERROUS FUMARATE [Concomitant]
     Active Substance: FERROUS FUMARATE
  11. BISACODYL. [Concomitant]
     Active Substance: BISACODYL

REACTIONS (5)
  - Forced vital capacity decreased [Not Recovered/Not Resolved]
  - Asthenia [Not Recovered/Not Resolved]
  - Rhabdomyolysis [Fatal]
  - Drug interaction [Not Recovered/Not Resolved]
  - Hypocalcaemia [Not Recovered/Not Resolved]

NARRATIVE: CASE EVENT DATE: 20170921
